FAERS Safety Report 25038866 (Version 4)
Quarter: 2025Q4

REPORT INFORMATION
  Report Type: Report from Study
  Country: US (occurrence: US)
  Receive Date: 20250305
  Receipt Date: 20251222
  Transmission Date: 20260118
  Serious: Yes (Death, Other)
  Sender: JOHNSON AND JOHNSON
  Company Number: US-JNJFOC-20250279954

PATIENT
  Age: 56 Year
  Sex: Female

DRUGS (2)
  1. CILTACABTAGENE AUTOLEUCEL [Suspect]
     Active Substance: CILTACABTAGENE AUTOLEUCEL
     Indication: Plasma cell myeloma
     Dosage: TOTAL NUMBER OF CELLS ADMINISTERED - 53.36, TOTAL CELLS EXPONENT VALUE - 6
     Route: 042
  2. CILTACABTAGENE AUTOLEUCEL [Suspect]
     Active Substance: CILTACABTAGENE AUTOLEUCEL
     Indication: Plasma cell disorder

REACTIONS (3)
  - Neoplasm malignant [Fatal]
  - Bacterial infection [Fatal]
  - Myelodysplastic syndrome [Unknown]
